FAERS Safety Report 7967226-1 (Version None)
Quarter: 2011Q4

REPORT INFORMATION
  Report Type: 
  Country: None (occurrence: None)
  Receive Date: 20111209
  Receipt Date: 20111206
  Transmission Date: 20120403
  Serious: Yes (Hospitalization)
  Sender: FDA-Public Use
  Company Number: JP-PFIZER INC-2011193147

PATIENT
  Age: 17 Year
  Sex: Female

DRUGS (7)
  1. RITODRINE HYDROCHLORIDE [Suspect]
     Dosage: 50 MICROG/MINUTE, DAILY
     Route: 041
     Dates: start: 20110809, end: 20110809
  2. DEXTROSE [Concomitant]
     Indication: INFUSION
     Dosage: 500 ML, UNK
     Route: 041
     Dates: start: 20110721, end: 20110727
  3. DEXTROSE [Concomitant]
     Dosage: 500 ML, UNK
     Route: 041
     Dates: start: 20110809, end: 20110809
  4. RITODRINE HYDROCHLORIDE [Suspect]
     Indication: THREATENED LABOUR
     Dosage: 50 MICROG/MINUTE, DAILY
     Route: 041
     Dates: start: 20110721, end: 20110727
  5. FLUMARIN [Concomitant]
     Indication: CALCULUS URETERIC
     Dosage: 1 G, 2X/DAY
     Route: 041
     Dates: start: 20110721, end: 20110725
  6. RITODRINE HYDROCHLORIDE [Suspect]
     Dosage: 5 MG, 3X/DAY
     Route: 048
     Dates: start: 20110101, end: 20110801
  7. CABERGOLINE [Suspect]
     Indication: LACTATION INHIBITION THERAPY
     Dosage: UNK
     Route: 048
     Dates: start: 20110801, end: 20110801

REACTIONS (1)
  - RHABDOMYOLYSIS [None]
